FAERS Safety Report 7947876 (Version 3)
Quarter: 2013Q4

REPORT INFORMATION
  Report Type: Spontaneous
  Country: US (occurrence: US)
  Receive Date: 20110517
  Receipt Date: 20131118
  Transmission Date: 20140711
  Serious: Yes (Hospitalization)
  Sender: FDA-Public Use
  Company Number: US-BAYER-201038370NA

PATIENT
  Age: 19 Year
  Sex: Female
  Weight: 118 kg

DRUGS (17)
  1. YAZ [Suspect]
     Indication: ACNE
  2. YASMIN [Suspect]
     Indication: ACNE
  3. OCELLA [Suspect]
     Indication: ACNE
  4. NEXIUM [Concomitant]
     Indication: GASTROOESOPHAGEAL REFLUX DISEASE
     Dosage: 40 MG, UNK
     Route: 048
  5. IBUPROFEN [Concomitant]
     Indication: ABDOMINAL PAIN
  6. ULTRAM [Concomitant]
     Dosage: 100 MG, UNK
     Route: 048
     Dates: start: 20060927
  7. PROVENTIL [Concomitant]
     Dosage: UNK
     Dates: start: 2008
  8. ADVAIR [Concomitant]
     Dosage: UNK
     Dates: start: 2009
  9. TETRACYCLINE [Concomitant]
     Dosage: UNK
     Dates: start: 2008, end: 2009
  10. DAYQUIL [DEXTROMET HBR,GUAIF,PARACET,PSEUDOEPH HCL] [Concomitant]
     Dosage: UNK
     Dates: start: 20070902
  11. AUGMENTIN [Concomitant]
     Dosage: 875 MG, BID
     Dates: start: 20070902
  12. TYLENOL [PARACETAMOL] [Concomitant]
     Dosage: UNK
     Dates: start: 20071011
  13. AVELOX [Concomitant]
     Dosage: 400 MG DAILY
     Dates: start: 20071011
  14. BENTYL [Concomitant]
     Dosage: 20 MG, QID
     Dates: start: 20071124
  15. PHENERGAN [Concomitant]
     Dosage: 25 MG EVERY FOUR HRS
     Dates: start: 20071125
  16. CIPRO [Concomitant]
     Dosage: 500 MG, BID
     Dates: start: 20071125
  17. DICYCLOMINE [Concomitant]
     Dosage: 20 MG, QID
     Dates: start: 20071125

REACTIONS (7)
  - Cholecystitis [None]
  - Biliary dyskinesia [None]
  - Cholecystectomy [None]
  - Weight increased [None]
  - Hormone level abnormal [None]
  - Injury [None]
  - Pain [None]
